FAERS Safety Report 8406728-0 (Version None)
Quarter: 2012Q2

REPORT INFORMATION
  Report Type: 
  Country: None (occurrence: None)
  Receive Date: 20120604
  Receipt Date: 20120601
  Transmission Date: 20120825
  Serious: Yes (Death)
  Sender: FDA-Public Use
  Company Number: PHHY2012DE012638

PATIENT
  Sex: Male

DRUGS (15)
  1. AFINITOR [Suspect]
     Indication: METASTATIC RENAL CELL CARCINOMA
     Dosage: 10 MG, PER DAY
     Route: 048
     Dates: start: 20120105
  2. ACTRAPHANE HM [Concomitant]
     Indication: DIABETES MELLITUS
     Route: 058
  3. LERCANIDIPINE [Concomitant]
     Indication: HYPERTENSION
     Route: 048
  4. CLONIDINE [Concomitant]
     Route: 048
  5. FORMOTEROL FUMARATE [Concomitant]
     Indication: CHRONIC OBSTRUCTIVE PULMONARY DISEASE
     Route: 048
  6. COLECALCIFEROL [Concomitant]
     Route: 048
  7. CHLORHEXIDINE GLUCONATE [Concomitant]
     Route: 048
  8. RAMIPRIL [Concomitant]
     Indication: HYPERTENSION
     Route: 048
  9. CARVEDILOL [Concomitant]
     Indication: HYPERTENSION
     Route: 048
  10. LEVODOPA [Concomitant]
     Route: 048
  11. LEVOCOMP [Concomitant]
     Route: 048
  12. GABAPENTIN [Concomitant]
     Route: 048
  13. TIOTROPIUM BROMIDE [Concomitant]
     Indication: CHRONIC OBSTRUCTIVE PULMONARY DISEASE
     Route: 048
  14. SIMVASTATIN [Concomitant]
     Indication: HYPERLIPIDAEMIA
     Route: 048
  15. TORSEMIDE [Concomitant]
     Indication: HYPERTENSION
     Route: 048

REACTIONS (6)
  - ACUTE MYOCARDIAL INFARCTION [None]
  - OEDEMA PERIPHERAL [None]
  - ANEURYSM RUPTURED [None]
  - HYPERTENSION [None]
  - DYSPNOEA [None]
  - SUDDEN CARDIAC DEATH [None]
